FAERS Safety Report 24312838 (Version 1)
Quarter: 2024Q3

REPORT INFORMATION
  Report Type: Spontaneous
  Country: AR (occurrence: AR)
  Receive Date: 20240912
  Receipt Date: 20240912
  Transmission Date: 20241017
  Serious: Yes (Other)
  Sender: GLAXOSMITHKLINE
  Company Number: AR-GLAXOSMITHKLINE-AR2023AMR130841

PATIENT

DRUGS (1)
  1. NUCALA [Suspect]
     Active Substance: MEPOLIZUMAB
     Indication: Asthma
     Dosage: 100 MG/ML, MO (EVERY 28 DAYS)
     Route: 058
     Dates: start: 20220531

REACTIONS (6)
  - Glaucoma [Unknown]
  - Multiple allergies [Not Recovered/Not Resolved]
  - Bronchial secretion retention [Not Recovered/Not Resolved]
  - Weight decreased [Not Recovered/Not Resolved]
  - Condition aggravated [Not Recovered/Not Resolved]
  - Vitreous floaters [Not Recovered/Not Resolved]
